FAERS Safety Report 25733617 (Version 1)
Quarter: 2025Q3

REPORT INFORMATION
  Report Type: Spontaneous
  Country: CA (occurrence: CA)
  Receive Date: 20250828
  Receipt Date: 20250828
  Transmission Date: 20251021
  Serious: Yes (Life-Threatening, Hospitalization)
  Sender: AMGEN
  Company Number: CA-AMGEN-CANSP2025167043

PATIENT
  Age: 23 Year
  Sex: Female

DRUGS (10)
  1. RITUXIMAB [Suspect]
     Active Substance: RITUXIMAB
     Indication: Ovarian germ cell teratoma benign
     Route: 040
  2. RITUXIMAB [Suspect]
     Active Substance: RITUXIMAB
     Indication: Encephalitis autoimmune
     Route: 040
  3. PREDNISONE [Concomitant]
     Active Substance: PREDNISONE
     Indication: Ovarian germ cell teratoma benign
     Dosage: 50 MILLIGRAM, QD (VIA NASOGASTRIC TUBE)
  4. PREDNISONE [Concomitant]
     Active Substance: PREDNISONE
     Indication: Encephalitis autoimmune
  5. Immunoglobulin [Concomitant]
     Indication: Ovarian germ cell teratoma benign
     Dosage: UNK, QD (FOR 4 DAYS)
     Route: 040
  6. Immunoglobulin [Concomitant]
     Indication: Encephalitis autoimmune
  7. METHYLPREDNISOLONE [Concomitant]
     Active Substance: METHYLPREDNISOLONE
     Indication: Ovarian germ cell teratoma benign
     Dosage: 1 MILLIGRAM/KILOGRAM, QD ((50MG FOR 16 DAYS)
     Route: 040
  8. METHYLPREDNISOLONE [Concomitant]
     Active Substance: METHYLPREDNISOLONE
     Indication: Encephalitis autoimmune
  9. TOCILIZUMAB [Concomitant]
     Active Substance: TOCILIZUMAB
     Indication: Ovarian germ cell teratoma benign
     Route: 040
  10. TOCILIZUMAB [Concomitant]
     Active Substance: TOCILIZUMAB
     Indication: Encephalitis autoimmune

REACTIONS (5)
  - Altered state of consciousness [Recovered/Resolved]
  - Dyskinesia [Unknown]
  - Nosocomial infection [Unknown]
  - Drug effective for unapproved indication [Unknown]
  - Off label use [Unknown]
